FAERS Safety Report 17146252 (Version 1)
Quarter: 2019Q4

REPORT INFORMATION
  Report Type: Report from Study
  Country: CA (occurrence: CA)
  Receive Date: 20191212
  Receipt Date: 20191212
  Transmission Date: 20200122
  Serious: Yes (Hospitalization, Other)
  Sender: FDA-Public Use
  Company Number: CA-ASTELLAS-2019US049063

PATIENT
  Age: 84 Year
  Sex: Male

DRUGS (2)
  1. ENZALUTAMIDE [Suspect]
     Active Substance: ENZALUTAMIDE
     Indication: HORMONE-REFRACTORY PROSTATE CANCER
     Dosage: 160 MG, ONCE DAILY (ONE TABLET AT A TIME AT BREAKFAST, LUNCH, DINNER, AND BEFORE BED)
     Route: 048
     Dates: start: 20191126, end: 20191204
  2. ENZALUTAMIDE [Suspect]
     Active Substance: ENZALUTAMIDE
     Dosage: 160 MG, ONCE DAILY (ONE TABLET AT A TIME AT BREAKFAST, LUNCH, DINNER, AND BEFORE BED)
     Route: 048
     Dates: start: 20191205

REACTIONS (5)
  - Intentional dose omission [Unknown]
  - Squamous cell carcinoma [Unknown]
  - Blood pressure decreased [Unknown]
  - Asthenia [Unknown]
  - Inappropriate schedule of product administration [Unknown]

NARRATIVE: CASE EVENT DATE: 20191126
